FAERS Safety Report 23039665 (Version 1)
Quarter: 2023Q4

REPORT INFORMATION
  Report Type: Spontaneous
  Country: US (occurrence: US)
  Receive Date: 20231006
  Receipt Date: 20231006
  Transmission Date: 20240109
  Serious: Yes (Hospitalization, Other)
  Sender: FDA-Public Use
  Company Number: US-ELI_LILLY_AND_COMPANY-US202309015741

PATIENT
  Sex: Male

DRUGS (3)
  1. HUMULIN 70/30 [Suspect]
     Active Substance: INSULIN HUMAN
     Indication: Diabetes mellitus
     Dosage: 70 U, EACH MORNING
     Route: 058
  2. HUMULIN 70/30 [Suspect]
     Active Substance: INSULIN HUMAN
     Dosage: 30 U, UNKNOWN
     Route: 058
  3. HUMALOG [Suspect]
     Active Substance: INSULIN LISPRO
     Indication: Diabetes mellitus
     Dosage: UNK UNK, UNKNOWN
     Route: 058

REACTIONS (19)
  - Heat stroke [Unknown]
  - Pancreatitis [Unknown]
  - Blindness unilateral [Unknown]
  - Hernia [Unknown]
  - Loss of consciousness [Unknown]
  - Pulmonary congestion [Unknown]
  - Memory impairment [Unknown]
  - Blood triglycerides increased [Unknown]
  - Blood cholesterol increased [Unknown]
  - Hypertension [Unknown]
  - Cardiac disorder [Unknown]
  - Fatigue [Unknown]
  - Weight increased [Unknown]
  - Blood glucose increased [Unknown]
  - Renal disorder [Unknown]
  - Blood glucose decreased [Unknown]
  - Visual impairment [Unknown]
  - Incorrect product administration duration [Unknown]
  - Inappropriate schedule of product administration [Unknown]
